FAERS Safety Report 11889951 (Version 1)
Quarter: 2016Q1

REPORT INFORMATION
  Report Type: Spontaneous
  Country: US (occurrence: US)
  Receive Date: 20160105
  Receipt Date: 20160105
  Transmission Date: 20160526
  Serious: No
  Sender: FDA-Public Use
  Company Number: US-PERRIGO-15US009123

PATIENT
  Age: 85 Year
  Sex: Female
  Weight: 70.75 kg

DRUGS (3)
  1. GUAIFENESIN 600 MG 498 [Suspect]
     Active Substance: GUAIFENESIN
     Indication: SINUSITIS
     Dosage: 600 MG, BID
     Route: 048
     Dates: start: 20150826, end: 20150830
  2. SYNTHROID [Concomitant]
     Active Substance: LEVOTHYROXINE SODIUM
     Indication: HYPOTHYROIDISM
     Dosage: UNK
     Route: 065
  3. CEPHALEXIN                         /00145501/ [Concomitant]
     Active Substance: CEPHALEXIN
     Indication: SINUSITIS
     Dosage: UNK, TID
     Route: 065
     Dates: start: 20150826

REACTIONS (5)
  - Palpitations [Recovering/Resolving]
  - Drug ineffective [Unknown]
  - Dyspnoea [Recovered/Resolved]
  - Anxiety [Recovering/Resolving]
  - Dysphonia [Recovered/Resolved]

NARRATIVE: CASE EVENT DATE: 201508
